FAERS Safety Report 5195661-6 (Version None)
Quarter: 2006Q4

REPORT INFORMATION
  Report Type: 
  Country: None (occurrence: None)
  Receive Date: 20061222
  Receipt Date: 20061222
  Transmission Date: 20070319
  Serious: Yes (Hospitalization)
  Sender: FDA-Public Use
  Company Number: None

PATIENT
  Sex: Female

DRUGS (10)
  1. GLEEVEC [Suspect]
     Indication: GLIOBLASTOMA MULTIFORME
     Dosage: 400 MG QD
     Dates: start: 20050823, end: 20061130
  2. HYDROXYUREA [Suspect]
     Dosage: 500 MG BID
     Dates: start: 20050823, end: 20061130
  3. TOPROL-XL [Concomitant]
  4. DECADRON [Concomitant]
  5. PEPCID [Concomitant]
  6. DILANTIN [Concomitant]
  7. LOVENOX [Concomitant]
  8. LEXAPRO [Concomitant]
  9. KEPPRA [Concomitant]
  10. ZOFRAN [Concomitant]

REACTIONS (6)
  - ABDOMINAL PAIN UPPER [None]
  - ASTHENIA [None]
  - FALL [None]
  - PAIN [None]
  - PNEUMONIA [None]
  - SPINAL FRACTURE [None]
